FAERS Safety Report 7830793-2 (Version None)
Quarter: 2011Q4

REPORT INFORMATION
  Report Type: 
  Country: None (occurrence: None)
  Receive Date: 20111021
  Receipt Date: 20111017
  Transmission Date: 20120403
  Serious: Yes (Death, Hospitalization)
  Sender: FDA-Public Use
  Company Number: US-GLAXOSMITHKLINE-A0949340A

PATIENT
  Age: 83 Year
  Sex: Male

DRUGS (8)
  1. KEPPRA [Concomitant]
  2. METOPROLOL TARTRATE [Concomitant]
  3. HYDROXYUREA [Concomitant]
  4. PLAVIX [Concomitant]
  5. LAMICTAL [Suspect]
     Indication: PARTIAL SEIZURES
     Dosage: 375MG PER DAY
     Route: 048
     Dates: start: 20101001, end: 20111011
  6. ASPIRIN [Concomitant]
  7. ENALAPRIL MALEATE [Concomitant]
  8. NIASPAN [Concomitant]

REACTIONS (4)
  - WRONG TECHNIQUE IN DRUG USAGE PROCESS [None]
  - BRAIN INJURY [None]
  - FALL [None]
  - HEAD INJURY [None]
